FAERS Safety Report 9885443 (Version 2)
Quarter: 2014Q2

REPORT INFORMATION
  Report Type: Spontaneous
  Country: US (occurrence: US)
  Receive Date: 20140210
  Receipt Date: 20140429
  Transmission Date: 20141212
  Serious: Yes (Hospitalization, Other)
  Sender: FDA-Public Use
  Company Number: US-BAYER-2014-019432

PATIENT
  Age: 31 Year
  Sex: Female
  Weight: 72.56 kg

DRUGS (4)
  1. MIRENA [Suspect]
     Indication: CONTRACEPTION
     Dosage: 20 MCG/24HR, CONT
     Route: 015
     Dates: start: 20111104, end: 20130327
  2. VITAMIN D [Concomitant]
     Route: 048
  3. IRON [Concomitant]
     Route: 048
  4. VITAMIN B12 [CYANOCOBALAMIN] [Concomitant]

REACTIONS (10)
  - Uterine perforation [None]
  - Device breakage [None]
  - Abdominal adhesions [None]
  - Emotional distress [None]
  - Device dislocation [None]
  - Device difficult to use [None]
  - Injury [None]
  - Pain [None]
  - Depression [None]
  - Device issue [None]
